FAERS Safety Report 7637713-4 (Version None)
Quarter: 2011Q3

REPORT INFORMATION
  Report Type: 
  Country: None (occurrence: None)
  Receive Date: 20110726
  Receipt Date: 20110721
  Transmission Date: 20111222
  Serious: Yes (Death, Hospitalization, Other)
  Sender: FDA-Public Use
  Company Number: US-AMGEN-USASP2011008591

PATIENT
  Sex: Female

DRUGS (2)
  1. NPLATE [Suspect]
     Indication: IDIOPATHIC THROMBOCYTOPENIC PURPURA
     Dosage: 5 A?G/KG, UNK
     Dates: start: 20101123, end: 20101207
  2. CORTICOSTEROIDS [Concomitant]

REACTIONS (5)
  - AORTIC STENOSIS [None]
  - UPPER GASTROINTESTINAL HAEMORRHAGE [None]
  - ANAEMIA [None]
  - CARDIAC FAILURE CONGESTIVE [None]
  - IDIOPATHIC THROMBOCYTOPENIC PURPURA [None]
